FAERS Safety Report 21080450 (Version 2)
Quarter: 2023Q1

REPORT INFORMATION
  Report Type: Spontaneous
  Country: CA (occurrence: CA)
  Receive Date: 20220714
  Receipt Date: 20230331
  Transmission Date: 20230418
  Serious: Yes (Other)
  Sender: FDA-Public Use
  Company Number: CA-SAMSUNG BIOEPIS-SB-2021-26885

PATIENT
  Age: 34 Year
  Sex: Male
  Weight: 87 kg

DRUGS (1)
  1. INFLIXIMAB [Suspect]
     Active Substance: INFLIXIMAB
     Indication: Crohn^s disease
     Route: 042

REACTIONS (9)
  - Bacterial infection [Recovered/Resolved]
  - Blood pressure systolic increased [Recovered/Resolved]
  - Fungal infection [Recovered/Resolved]
  - Gastrointestinal bacterial infection [Recovered/Resolved]
  - Heart rate decreased [Recovered/Resolved]
  - Anal fistula [Recovered/Resolved]
  - Intentional product use issue [Recovered/Resolved]
  - Off label use [Recovered/Resolved]
  - Product use issue [Recovered/Resolved]
